FAERS Safety Report 5995355-0 (Version None)
Quarter: 2008Q4

REPORT INFORMATION
  Report Type: 
  Country: None (occurrence: None)
  Receive Date: 20081212
  Receipt Date: 20080922
  Transmission Date: 20090506
  Serious: No
  Sender: FDA-Public Use
  Company Number: US-ABBOTT-08P-163-0477622-00

PATIENT
  Sex: Female
  Weight: 67.192 kg

DRUGS (8)
  1. HUMIRA [Suspect]
     Indication: RHEUMATOID ARTHRITIS
     Route: 058
     Dates: start: 20080601
  2. CETIRIZINE HYDROCHLORIDE [Concomitant]
     Indication: HYPERSENSITIVITY
     Route: 048
     Dates: start: 20080301
  3. METHOTREXATE [Concomitant]
     Indication: RHEUMATOID ARTHRITIS
     Dosage: 8 PILLS - 20 MG
     Route: 048
     Dates: start: 20080301
  4. HYDROXYCHLOROQUINE SULFATE [Concomitant]
     Indication: RHEUMATOID ARTHRITIS
     Route: 048
     Dates: start: 20080301
  5. FOLIC ACID [Concomitant]
     Indication: VITAMIN SUPPLEMENTATION
     Route: 048
     Dates: start: 20080301
  6. PREDNISONE TAB [Concomitant]
     Indication: RHEUMATOID ARTHRITIS
     Route: 048
     Dates: start: 20080201
  7. IRON [Concomitant]
     Indication: ANAEMIA
     Route: 048
     Dates: start: 20080301
  8. FISH OIL [Concomitant]
     Indication: SUPPLEMENTATION THERAPY
     Route: 048
     Dates: start: 20070101

REACTIONS (3)
  - ACNE [None]
  - DIZZINESS [None]
  - MENSTRUATION IRREGULAR [None]
